FAERS Safety Report 8885551 (Version 1)
Quarter: 2012Q4

REPORT INFORMATION
  Report Type: Report from Study
  Country: SE (occurrence: SE)
  Receive Date: 20121102
  Receipt Date: 20121102
  Transmission Date: 20130627
  Serious: Yes (Life-Threatening)
  Sender: FDA-Public Use
  Company Number: SE-AMGEN-SWECT2012060096

PATIENT
  Age: 34 Year
  Sex: Male

DRUGS (1)
  1. ETANERCEPT [Suspect]
     Indication: PSORIATIC ARTHROPATHY
     Dosage: 25 mg, qwk
     Route: 058
     Dates: start: 20070101, end: 20120331

REACTIONS (1)
  - Gastrointestinal carcinoma [Unknown]
